FAERS Safety Report 25757393 (Version 2)
Quarter: 2025Q3

REPORT INFORMATION
  Report Type: Report from Study
  Country: US (occurrence: US)
  Receive Date: 20250903
  Receipt Date: 20250916
  Transmission Date: 20251020
  Serious: Yes (Other)
  Sender: ALNYLAM PHARMACEUTICALS
  Company Number: US-ALNYLAM PHARMACEUTICALS, INC.-ALN-2025-005298

PATIENT

DRUGS (1)
  1. GIVLAARI [Suspect]
     Active Substance: GIVOSIRAN SODIUM
     Indication: Product used for unknown indication
     Dosage: 172.5 MILLIGRAM, MONTHLY
     Route: 058
     Dates: start: 20250611, end: 20250611

REACTIONS (2)
  - Precancerous skin lesion [Not Recovered/Not Resolved]
  - Abdominal pain upper [Unknown]
